FAERS Safety Report 13589814 (Version 1)
Quarter: 2017Q2

REPORT INFORMATION
  Report Type: Spontaneous
  Country: FI (occurrence: FI)
  Receive Date: 20170530
  Receipt Date: 20170530
  Transmission Date: 20170830
  Serious: Yes (Hospitalization)
  Sender: FDA-Public Use
  Company Number: FI-JNJFOC-20170407760

PATIENT
  Age: 83 Year
  Sex: Female

DRUGS (8)
  1. ATORVASTATIN [Concomitant]
     Active Substance: ATORVASTATIN
     Route: 065
  2. TOREM [Concomitant]
     Active Substance: TORSEMIDE
     Dosage: 0.5 DF
     Route: 065
  3. VITAMIN D [Concomitant]
     Active Substance: CHOLECALCIFEROL
     Route: 065
  4. XARELTO [Suspect]
     Active Substance: RIVAROXABAN
     Indication: ATRIAL FIBRILLATION
     Route: 048
  5. CONCOR COR [Concomitant]
     Active Substance: BISOPROLOL FUMARATE
     Dosage: 0.5 DF
     Route: 065
  6. TRIATEC [Concomitant]
     Active Substance: RAMIPRIL
     Dosage: 0.5+1 DF
     Route: 065
  7. SERESTA [Concomitant]
     Active Substance: OXAZEPAM
     Dosage: 0.5 DF
     Route: 065
  8. TIMOLOL. [Concomitant]
     Active Substance: TIMOLOL
     Dosage: 1 GTT DAILY TO BOTH EYES
     Route: 065

REACTIONS (2)
  - Cerebral ventricle collapse [Unknown]
  - Cerebral haemorrhage [Unknown]

NARRATIVE: CASE EVENT DATE: 20150628
